FAERS Safety Report 6248590-0 (Version None)
Quarter: 2009Q2

REPORT INFORMATION
  Report Type: 
  Country: None (occurrence: None)
  Receive Date: 20090624
  Receipt Date: 20090624
  Transmission Date: 20091009
  Serious: Yes (Life-Threatening, Hospitalization)
  Sender: FDA-Public Use
  Company Number: None

PATIENT
  Age: 38 Year
  Sex: Female

DRUGS (7)
  1. LOESTRIN FE 1/20 [Suspect]
     Indication: MENSTRUATION IRREGULAR
     Dosage: 1 TAB QD  (HOME)
  2. REMERON [Concomitant]
  3. LEVOTHYROXINE SODIUM [Concomitant]
  4. LOVAZA [Concomitant]
  5. ATORVASTATIN CALCIUM [Concomitant]
  6. M.V.I. [Concomitant]
  7. VIT D [Concomitant]

REACTIONS (1)
  - PULMONARY EMBOLISM [None]
